FAERS Safety Report 18457297 (Version 3)
Quarter: 2020Q4

REPORT INFORMATION
  Report Type: Report from Study
  Country: DE (occurrence: DE)
  Receive Date: 20201030
  Receipt Date: 20201113
  Transmission Date: 20210114
  Serious: Yes (Death, Life-Threatening, Hospitalization, Other)
  Sender: FDA-Public Use
  Company Number: DE-BRISTOL-MYERS SQUIBB COMPANY-BMS-2020-089836

PATIENT
  Age: 84 Year
  Sex: Female

DRUGS (10)
  1. METAMIZOL NATRIUM [Concomitant]
     Active Substance: METAMIZOLE SODIUM
     Indication: MUCOSAL INFLAMMATION
     Dosage: 3 GRAM, QD
     Route: 042
     Dates: start: 20201021
  2. CIPROFLOXACIN. [Concomitant]
     Active Substance: CIPROFLOXACIN
     Indication: ANTIBIOTIC THERAPY
     Dosage: 500 MILLIGRAM, QD
     Route: 048
     Dates: start: 20201019, end: 20201021
  3. NIVOLUMAB [Suspect]
     Active Substance: NIVOLUMAB
     Indication: NON-HODGKIN^S LYMPHOMA
     Dosage: 185 MILLIGRAM, QCYCLE
     Route: 042
     Dates: start: 20201009, end: 20201009
  4. FLUCONAZOL [Concomitant]
     Active Substance: FLUCONAZOLE
     Indication: PROPHYLAXIS
     Dosage: 100 MILLIGRAM, QD
     Route: 042
     Dates: start: 20201009
  5. OXALIPLATIN. [Suspect]
     Active Substance: OXALIPLATIN
     Indication: NON-HODGKIN^S LYMPHOMA
     Dosage: 162.5 MILLIGRAM
     Route: 042
     Dates: start: 20201010, end: 20201010
  6. AMPHOTERICIN B. [Concomitant]
     Active Substance: AMPHOTERICIN B
     Indication: PROPHYLAXIS
     Dosage: 100 MILLIGRAM, TID
     Route: 048
     Dates: start: 20201007
  7. GEMCITABINE HYDROCHLORIDE. [Suspect]
     Active Substance: GEMCITABINE HYDROCHLORIDE
     Indication: NON-HODGKIN^S LYMPHOMA
     Dosage: 1620 MILLIGRAM, QCYCLE
     Route: 042
     Dates: start: 20201010, end: 20201010
  8. BISOPROLOL [Concomitant]
     Active Substance: BISOPROLOL
     Indication: HYPERTENSION
     Dosage: 2.5 MILLIGRAM, BID
     Route: 048
     Dates: start: 20200929
  9. ALLOPURINOL. [Concomitant]
     Active Substance: ALLOPURINOL
     Indication: PROPHYLAXIS
     Dosage: 100 MILLIGRAM, QD
     Route: 048
     Dates: start: 20201011
  10. NOVAMINSULFON [Concomitant]
     Active Substance: METAMIZOLE
     Indication: MUCOSAL INFLAMMATION
     Dosage: 3 GRAM, QD
     Route: 042
     Dates: start: 20201021

REACTIONS (3)
  - Urosepsis [Fatal]
  - Epstein-Barr virus infection reactivation [Fatal]
  - Pancytopenia [Fatal]

NARRATIVE: CASE EVENT DATE: 20201023
